FAERS Safety Report 9236958 (Version 1)
Quarter: 2013Q2

REPORT INFORMATION
  Report Type: Report from Study
  Country: US (occurrence: US)
  Receive Date: 20130417
  Receipt Date: 20130417
  Transmission Date: 20140414
  Serious: Yes (Hospitalization)
  Sender: FDA-Public Use
  Company Number: US-ASTRAZENECA-2013SE11431

PATIENT
  Age: 21117 Day
  Sex: Female
  Weight: 75.3 kg

DRUGS (15)
  1. SYMBICORT PMDI [Suspect]
     Indication: ASTHMA
     Dosage: 160/4.5 MCG, 2 PUFFS TWO TIMES DAILY
     Route: 055
     Dates: start: 201203
  2. SYMBICORT PMDI [Suspect]
     Indication: EMPHYSEMA
     Dosage: 160/4.5 MCG, 2 PUFFS TWO TIMES DAILY
     Route: 055
     Dates: start: 201203
  3. SYMBICORT PMDI [Suspect]
     Indication: ASTHMA
     Dosage: 160/4.5 MCG, 1 PUFF  DAILY
     Route: 055
  4. SYMBICORT PMDI [Suspect]
     Indication: EMPHYSEMA
     Dosage: 160/4.5 MCG, 1 PUFF  DAILY
     Route: 055
  5. SINGULAIR [Concomitant]
     Indication: ASTHMA
     Route: 048
     Dates: start: 2010
  6. SINGULAIR [Concomitant]
     Indication: EMPHYSEMA
     Route: 048
     Dates: start: 2010
  7. SPIRIVA [Concomitant]
     Indication: ASTHMA
     Route: 048
     Dates: start: 201203
  8. SPIRIVA [Concomitant]
     Indication: EMPHYSEMA
     Route: 048
     Dates: start: 201203
  9. ALPRAZOLAM [Concomitant]
  10. CLOTRIMAZOLE [Concomitant]
     Indication: CANDIDA INFECTION
     Dosage: 10 MG AS NEEDED, TID
  11. DRISDOL [Concomitant]
  12. HM VITAMIN B12 [Concomitant]
  13. NASONEX [Concomitant]
     Dosage: 50 MCG/ACT, AS NEEDED,  1 SPRAY EACH NOSTRIL AT BEDTIME
  14. PROAIR HFA [Concomitant]
     Dosage: 108 (90 BASE) MCG/ACT, 2 PUFFS QID
  15. SYSTANE BALANCE [Concomitant]
     Dosage: 1 GTT EACH EYE PRN

REACTIONS (8)
  - Heart rate increased [Recovering/Resolving]
  - Chest pain [Recovering/Resolving]
  - Fatigue [Recovering/Resolving]
  - Blood pressure decreased [Unknown]
  - Oral candidiasis [Unknown]
  - Hirsutism [Unknown]
  - Vitamin D deficiency [Unknown]
  - Off label use [Unknown]
